FAERS Safety Report 9835023 (Version 2)
Quarter: 2014Q1

REPORT INFORMATION
  Report Type: Spontaneous
  Country: US (occurrence: US)
  Receive Date: 20140122
  Receipt Date: 20140122
  Transmission Date: 20141002
  Serious: No
  Sender: FDA-Public Use
  Company Number: US-ACORDA-ACO_34421_2013

PATIENT
  Sex: Female

DRUGS (3)
  1. ZANAFLEX TABLETS [Suspect]
     Indication: PRODUCT USED FOR UNKNOWN INDICATION
     Dosage: 4 MG, BID
     Route: 048
  2. FLEXERIL [Suspect]
     Indication: PRODUCT USED FOR UNKNOWN INDICATION
     Dosage: UNK UNK, TID
     Route: 048
  3. FLEXERIL [Suspect]
     Dosage: UNK UNK, BID
     Route: 048

REACTIONS (3)
  - Psychomotor hyperactivity [Recovered/Resolved]
  - Insomnia [Unknown]
  - Somnolence [Unknown]
